FAERS Safety Report 9553156 (Version 1)
Quarter: 2013Q3

REPORT INFORMATION
  Report Type: Spontaneous
  Country: US (occurrence: None)
  Receive Date: 20130724
  Receipt Date: 20130724
  Transmission Date: 20140515
  Serious: Yes (Other)
  Sender: FDA-Public Use
  Company Number: PHEH2012US019691

PATIENT
  Age: 72 Year
  Sex: Female
  Weight: 83.01 kg

DRUGS (2)
  1. GLEEVEC [Suspect]
     Indication: CHRONIC MYELOID LEUKAEMIA
     Route: 048
     Dates: start: 200412
  2. SPRYCEL (DASATINIB) [Suspect]

REACTIONS (20)
  - Depression [None]
  - Chronic myeloid leukaemia [None]
  - Tongue disorder [None]
  - Neck pain [None]
  - Tendon pain [None]
  - Ligament pain [None]
  - Mental impairment [None]
  - Haematocrit decreased [None]
  - Glossitis [None]
  - Bone pain [None]
  - Diarrhoea [None]
  - Muscle spasms [None]
  - Fatigue [None]
  - Anaemia [None]
  - Weight increased [None]
  - Myalgia [None]
  - Musculoskeletal stiffness [None]
  - Haemoglobin decreased [None]
  - Chromosome analysis abnormal [None]
  - Malignant neoplasm progression [None]
